FAERS Safety Report 24577915 (Version 1)
Quarter: 2024Q4

REPORT INFORMATION
  Report Type: Spontaneous
  Country: US (occurrence: US)
  Receive Date: 20241104
  Receipt Date: 20241104
  Transmission Date: 20250114
  Serious: Yes (Other)
  Sender: ALEXION PHARMACEUTICALS
  Company Number: US-AstraZeneca-CH-00735426A

PATIENT

DRUGS (4)
  1. LYNPARZA [Suspect]
     Active Substance: OLAPARIB
     Dosage: UNK
  2. LYNPARZA [Suspect]
     Active Substance: OLAPARIB
     Dosage: UNK
  3. LYNPARZA [Suspect]
     Active Substance: OLAPARIB
     Dosage: UNK
  4. LYNPARZA [Suspect]
     Active Substance: OLAPARIB
     Dosage: UNK

REACTIONS (1)
  - Glaucoma [Unknown]
